FAERS Safety Report 15096069 (Version 3)
Quarter: 2023Q2

REPORT INFORMATION
  Report Type: Spontaneous
  Country: CZ (occurrence: CZ)
  Receive Date: 20180702
  Receipt Date: 20230421
  Transmission Date: 20230722
  Serious: Yes (Other)
  Sender: FDA-Public Use
  Company Number: CZ-TEVA-2018-CZ-919196

PATIENT
  Age: 62 Year
  Sex: Male

DRUGS (5)
  1. PARICALCITOL [Suspect]
     Active Substance: PARICALCITOL
     Indication: Hyperparathyroidism secondary
     Dosage: 1 MICROGRAM DAILY; ONCE DAILY
     Route: 048
  2. WARFARIN [Suspect]
     Active Substance: WARFARIN
     Indication: Deep vein thrombosis
     Route: 065
  3. CALCIUM [Suspect]
     Active Substance: CALCIUM
     Indication: Hyperparathyroidism secondary
     Dosage: 1000 MILLIGRAM DAILY; ONCE DAILY
     Route: 065
  4. SODIUM BICARBONATE [Concomitant]
     Active Substance: SODIUM BICARBONATE
     Indication: Product used for unknown indication
     Route: 065
  5. ASPIRIN [Concomitant]
     Active Substance: ASPIRIN
     Indication: Product used for unknown indication
     Route: 065

REACTIONS (5)
  - Calciphylaxis [Recovered/Resolved]
  - Skin disorder [Recovered/Resolved]
  - Skin ulcer [Recovered/Resolved]
  - Bedridden [Recovered/Resolved]
  - Skin necrosis [Recovered/Resolved]
